FAERS Safety Report 13296221 (Version 1)
Quarter: 2017Q1

REPORT INFORMATION
  Report Type: Report from Study
  Country: NL (occurrence: NL)
  Receive Date: 20170304
  Receipt Date: 20170304
  Transmission Date: 20170428
  Serious: Yes (Other)
  Sender: FDA-Public Use
  Company Number: NL-AMGEN-NLDSL2017031529

PATIENT
  Age: 62 Year
  Sex: Female

DRUGS (18)
  1. PARACETAMOL [Concomitant]
     Active Substance: ACETAMINOPHEN
     Dosage: 10 MG/ML, QID
     Dates: start: 20170214
  2. FLUIMUCIL [Concomitant]
     Active Substance: ACETYLCYSTEINE
     Dosage: 600 MG, QD
     Route: 048
     Dates: start: 20170214
  3. PIPERACILLIN AND TAZOBACTAM [Concomitant]
     Active Substance: PIPERACILLIN SODIUM\TAZOBACTAM SODIUM
     Dosage: 4000/500MG, QID
     Dates: start: 20170213, end: 20170220
  4. XGEVA [Suspect]
     Active Substance: DENOSUMAB
     Indication: PRODUCT USED FOR UNKNOWN INDICATION
     Dosage: 120 MG, Q4WK
     Route: 058
     Dates: start: 20160905
  5. METOCLOPRAM [Concomitant]
     Active Substance: METOCLOPRAMIDE
     Dosage: 10 MG, QD
     Route: 048
     Dates: start: 20170130
  6. CALCIUM CARBONATE W/COLECALCIFEROL [Concomitant]
     Active Substance: CALCIUM CARBONATE\CHOLECALCIFEROL
     Dosage: 1.25G/440IE (500 MG CALCIUM), QD
     Dates: start: 20160905
  7. TEMAZEPAM. [Concomitant]
     Active Substance: TEMAZEPAM
     Dosage: 10 MG, QD
     Route: 048
     Dates: start: 20170220
  8. FRAGMIN [Concomitant]
     Active Substance: DALTEPARIN SODIUM
     Dosage: 12.500 IU/ML, QD
  9. IPRATROPIUM BROMIDE W/SALBUTAMOL [Concomitant]
     Active Substance: ALBUTEROL\IPRATROPIUM BROMIDE
     Dosage: 1/0,2MG/ML FL, QID
     Route: 055
     Dates: start: 20170221
  10. DEXAMETHASON [Concomitant]
     Active Substance: DEXAMETHASONE
     Dosage: 4 MG, BID
     Route: 048
     Dates: start: 20170130
  11. LIDOCAINE. [Concomitant]
     Active Substance: LIDOCAINE
     Dosage: 20 MG/ML, QD
     Route: 048
     Dates: start: 20170220
  12. FUROSEMIDE. [Concomitant]
     Active Substance: FUROSEMIDE
     Dosage: 20 MG, QD
     Route: 048
     Dates: start: 20170213
  13. FENTANYL TRANSDERMAL SYSTEM [Concomitant]
     Active Substance: FENTANYL
     Dosage: UNK, ^12MCG/UUR^
     Dates: start: 20170130
  14. OXYCODON [Concomitant]
     Active Substance: OXYCODONE
     Dosage: 5 MG, BID
     Route: 048
     Dates: start: 20170222, end: 20170223
  15. VITAMIN C [Concomitant]
     Active Substance: ASCORBIC ACID
     Dosage: 500 MG, QD
     Route: 048
     Dates: start: 20170221, end: 20170228
  16. KONAKION [Concomitant]
     Active Substance: PHYTONADIONE
     Dosage: 10 MG/ML, QD
     Dates: start: 20170217, end: 20170223
  17. GLUCOSUM [Concomitant]
     Dosage: 200 MG/ML (20%), QD
     Dates: start: 20170213
  18. SERETIDE [Concomitant]
     Active Substance: FLUTICASONE PROPIONATE\SALMETEROL XINAFOATE
     Dosage: 25/50MCG 120 DO, AS NECESSARY
     Route: 055
     Dates: start: 20160812

REACTIONS (10)
  - Pneumonia [Unknown]
  - Decubitus ulcer [Unknown]
  - Neutropenia [Unknown]
  - Breast cancer metastatic [Unknown]
  - Oral candidiasis [Unknown]
  - Constipation [Unknown]
  - Malignant pleural effusion [Unknown]
  - Oedema [Unknown]
  - Restless legs syndrome [Unknown]
  - Vitamin D deficiency [Unknown]

NARRATIVE: CASE EVENT DATE: 20160905
